FAERS Safety Report 5538392-2 (Version None)
Quarter: 2007Q4

REPORT INFORMATION
  Report Type: 
  Country: None (occurrence: None)
  Receive Date: 20071205
  Receipt Date: 20071128
  Transmission Date: 20080405
  Serious: Yes (Hospitalization)
  Sender: FDA-Public Use
  Company Number: DSU-2007-00933

PATIENT
  Sex: Female

DRUGS (2)
  1. AZOR [Suspect]
     Indication: DRUG USE FOR UNKNOWN INDICATION
     Dosage: PER ORAL
     Route: 048
     Dates: start: 20070101
  2. MORPHINE (MORPHINE HYDROCHLORIDE) (MORPHINE HYDROCHLORIDE) [Concomitant]

REACTIONS (2)
  - FALL [None]
  - HYPOTENSION [None]
